FAERS Safety Report 6969620-4 (Version None)
Quarter: 2010Q3

REPORT INFORMATION
  Report Type: 
  Country: None (occurrence: None)
  Receive Date: 20100907
  Receipt Date: 20100827
  Transmission Date: 20110219
  Serious: Yes (Death, Hospitalization, Other)
  Sender: FDA-Public Use
  Company Number: US-AMGEN-QUU428197

PATIENT
  Sex: Female
  Weight: 47.7 kg

DRUGS (22)
  1. NPLATE [Suspect]
     Indication: IDIOPATHIC THROMBOCYTOPENIC PURPURA
     Route: 058
     Dates: start: 20100305, end: 20100416
  2. CALCIUM [Concomitant]
     Route: 048
  3. DYAZIDE [Concomitant]
     Route: 048
  4. ESTRADIOL [Concomitant]
     Route: 048
  5. FOLIC ACID [Concomitant]
  6. GLUCOSAMINE W/CHONDROITIN SULFATES [Concomitant]
     Route: 048
  7. K-DUR [Concomitant]
     Route: 048
  8. NYSTATIN [Concomitant]
     Route: 048
  9. SYNTHROID [Concomitant]
  10. TYLENOL PM [Concomitant]
  11. VITAMIN B6 [Concomitant]
  12. ASCORBIC ACID [Concomitant]
     Route: 048
  13. VITAMIN D [Concomitant]
  14. RITALIN [Concomitant]
     Dates: start: 20100415
  15. ARTIFICIAL TEARS [Concomitant]
  16. LEVOTHYROXINE [Concomitant]
  17. LEXAPRO [Concomitant]
  18. ACETAMINOPHEN [Concomitant]
  19. MILK OF MAGNESIA TAB [Concomitant]
  20. BENADRYL [Concomitant]
  21. NASAL SALINE [Concomitant]
  22. MULTI-VITAMINS [Concomitant]
     Route: 048

REACTIONS (12)
  - ASTHENIA [None]
  - BLOOD PRESSURE DECREASED [None]
  - CANDIDIASIS [None]
  - CONFUSIONAL STATE [None]
  - DECREASED APPETITE [None]
  - DEHYDRATION [None]
  - DYSARTHRIA [None]
  - FAILURE TO THRIVE [None]
  - OEDEMA PERIPHERAL [None]
  - PNEUMONIA [None]
  - RESPIRATORY DISTRESS [None]
  - WEIGHT DECREASED [None]
